FAERS Safety Report 7884411-8 (Version None)
Quarter: 2011Q4

REPORT INFORMATION
  Report Type: 
  Country: None (occurrence: None)
  Receive Date: 20111102
  Receipt Date: 20110531
  Transmission Date: 20120403
  Serious: No
  Sender: FDA-Public Use
  Company Number: US-ASTRAZENECA-2011SE33706

PATIENT
  Age: 54 Year
  Sex: Male

DRUGS (9)
  1. MULTI-VITAMINS [Concomitant]
  2. IBUPROFEN [Concomitant]
  3. PROCHLORPERAZINE MALEATE [Concomitant]
  4. VANDETANIB [Suspect]
     Route: 048
  5. AMBIEN [Concomitant]
  6. LOMOTIL [Concomitant]
  7. SYNTHROID [Concomitant]
  8. CALCITRIOL [Concomitant]
  9. ATIVAN [Concomitant]

REACTIONS (3)
  - PHOTOSENSITIVITY REACTION [None]
  - PYREXIA [None]
  - OEDEMA PERIPHERAL [None]
